FAERS Safety Report 16706106 (Version 1)
Quarter: 2019Q3

REPORT INFORMATION
  Report Type: Spontaneous
  Country: FR (occurrence: FR)
  Receive Date: 20190815
  Receipt Date: 20190815
  Transmission Date: 20191004
  Serious: Yes (Hospitalization)
  Sender: FDA-Public Use
  Company Number: FR-MYLANLABS-2019M1075344

PATIENT
  Age: 85 Year
  Sex: Male

DRUGS (1)
  1. MOXIFLOXACIN. [Suspect]
     Active Substance: MOXIFLOXACIN
     Indication: LUNG DISORDER
     Dosage: UNK
     Route: 048
     Dates: start: 20190204, end: 20190207

REACTIONS (1)
  - Bundle branch block left [Recovered/Resolved]

NARRATIVE: CASE EVENT DATE: 20190207
